FAERS Safety Report 21010852 (Version 1)
Quarter: 2022Q3

REPORT INFORMATION
  Report Type: Spontaneous
  Country: CA (occurrence: CA)
  Receive Date: 20220627
  Receipt Date: 20220627
  Transmission Date: 20221026
  Serious: Yes (Other)
  Sender: FDA-Public Use
  Company Number: CA-NOVARTISPH-NVSC2022CA142759

PATIENT
  Age: 37 Year
  Sex: Female
  Weight: 63 kg

DRUGS (1)
  1. PIQRAY [Suspect]
     Active Substance: ALPELISIB
     Indication: Breast cancer
     Dosage: 300 MG, ONCE/SINGLE
     Route: 048

REACTIONS (6)
  - Blood urine present [Unknown]
  - Renal disorder [Unknown]
  - Renal pain [Unknown]
  - Urticaria [Unknown]
  - Vomiting [Unknown]
  - Rash macular [Unknown]
